FAERS Safety Report 4586828-6 (Version None)
Quarter: 2005Q1

REPORT INFORMATION
  Report Type: 
  Country: None (occurrence: None)
  Receive Date: 20050217
  Receipt Date: 20050217
  Transmission Date: 20050727
  Serious: Yes (Hospitalization)
  Sender: FDA-Public Use
  Company Number: None

PATIENT
  Age: 32 Year
  Sex: Female
  Weight: 55.3388 kg

DRUGS (3)
  1. COPAXONE [Suspect]
     Indication: MULTIPLE SCLEROSIS
     Dosage: 1   DAILY   SUBCUTANEO
     Route: 058
     Dates: start: 20040901, end: 20050206
  2. GABAPENTIN [Concomitant]
  3. LEXAPRO [Concomitant]

REACTIONS (5)
  - BLOOD PRESSURE DECREASED [None]
  - CHEST DISCOMFORT [None]
  - DYSPNOEA [None]
  - FLUSHING [None]
  - THROAT TIGHTNESS [None]
